FAERS Safety Report 6316070-X (Version None)
Quarter: 2009Q3

REPORT INFORMATION
  Report Type: 
  Country: None (occurrence: None)
  Receive Date: 20090820
  Receipt Date: 20090807
  Transmission Date: 20100115
  Serious: Yes (Death, Other)
  Sender: FDA-Public Use
  Company Number: PHHY2009PL33118

PATIENT
  Sex: Male
  Weight: 50 kg

DRUGS (6)
  1. ZOLEDRONATE T29581++BM [Suspect]
     Indication: PROSTATE CANCER
     Dosage: 4 MG / 28 DAYS
     Route: 042
     Dates: start: 20090529, end: 20090727
  2. CLEXANE [Concomitant]
     Indication: THROMBOSIS
     Dosage: UNK
     Dates: start: 20080101, end: 20090731
  3. KETONAL [Concomitant]
     Indication: PAIN
     Dosage: 1 DF, TID
     Dates: start: 20080101, end: 20090731
  4. FENTANYL [Concomitant]
     Indication: PAIN
     Dosage: 25 UG, UNK
     Dates: start: 20080101, end: 20090731
  5. CASODEX [Concomitant]
     Indication: PROSTATE CANCER
     Dosage: 50 MG, QD
     Dates: start: 20060101, end: 20090731
  6. CARDIOVASCULAR DRUGS [Concomitant]

REACTIONS (6)
  - CONFUSIONAL STATE [None]
  - DEPRESSED LEVEL OF CONSCIOUSNESS [None]
  - MALIGNANT NEOPLASM PROGRESSION [None]
  - MEMORY IMPAIRMENT [None]
  - METASTASES TO CENTRAL NERVOUS SYSTEM [None]
  - THROMBOSIS [None]
